FAERS Safety Report 12079365 (Version 1)
Quarter: 2016Q1

REPORT INFORMATION
  Report Type: Spontaneous
  Country: US (occurrence: None)
  Receive Date: 20160212
  Receipt Date: 20160212
  Transmission Date: 20160526
  Serious: Yes (Other)
  Sender: FDA-Public Use
  Company Number: None

PATIENT
  Age: 68 Year
  Sex: Female
  Weight: 88.45 kg

DRUGS (23)
  1. OMEPRAZOLE. [Concomitant]
     Active Substance: OMEPRAZOLE
  2. PROPAFENONE HCL [Concomitant]
     Active Substance: PROPAFENONE HYDROCHLORIDE
  3. VENLAFAXINE [Suspect]
     Active Substance: VENLAFAXINE HYDROCHLORIDE
     Indication: DEPRESSION
     Dosage: 150 MG PILL ONCE DAILY BY MOUTH
     Route: 048
     Dates: start: 20160201, end: 20160206
  4. CPAP MACHINE [Concomitant]
  5. CALCIUM [Concomitant]
     Active Substance: CALCIUM
  6. AMITRIPTYLINE HCL [Concomitant]
     Active Substance: AMITRIPTYLINE
  7. HYDROCHLOROTHIAZIDE. [Concomitant]
     Active Substance: HYDROCHLOROTHIAZIDE
  8. VENLAFAXINE HCL [Concomitant]
     Active Substance: VENLAFAXINE HYDROCHLORIDE
  9. VENLAFAXINE [Suspect]
     Active Substance: VENLAFAXINE HYDROCHLORIDE
     Indication: ANXIETY
     Dosage: 150 MG PILL ONCE DAILY BY MOUTH
     Route: 048
     Dates: start: 20160201, end: 20160206
  10. MULTI VITAMIN [Concomitant]
     Active Substance: VITAMINS
  11. AMLODIPINE BESYLATE. [Concomitant]
     Active Substance: AMLODIPINE BESYLATE
  12. AMOXICILLIN. [Concomitant]
     Active Substance: AMOXICILLIN
  13. CRANBERRY. [Concomitant]
     Active Substance: CRANBERRY
  14. GABAPENTIN. [Concomitant]
     Active Substance: GABAPENTIN
  15. METOPROLOL TARTRATE. [Concomitant]
     Active Substance: METOPROLOL TARTRATE
  16. ACYCLOVIR. [Concomitant]
     Active Substance: ACYCLOVIR
  17. MAGIC MOUTHWASH [Concomitant]
     Active Substance: DIPHENHYDRAMINE HYDROCHLORIDE\LIDOCAINE HYDROCHLORIDE\NYSTATIN
  18. VITAMIN D3 [Concomitant]
     Active Substance: CHOLECALCIFEROL
  19. AREDS2 [Concomitant]
  20. POTASSIUM CHLORIDE. [Concomitant]
     Active Substance: POTASSIUM CHLORIDE
  21. FISH OIL [Concomitant]
     Active Substance: FISH OIL
  22. ELIQUIS [Concomitant]
     Active Substance: APIXABAN
  23. MELOXICAM. [Concomitant]
     Active Substance: MELOXICAM

REACTIONS (2)
  - Depression [None]
  - Product substitution issue [None]

NARRATIVE: CASE EVENT DATE: 20160201
